FAERS Safety Report 7554641-3 (Version None)
Quarter: 2011Q2

REPORT INFORMATION
  Report Type: 
  Country: None (occurrence: None)
  Receive Date: 20110617
  Receipt Date: 20110516
  Transmission Date: 20111010
  Serious: No
  Sender: FDA-Public Use
  Company Number: US-MYLANLABS-2011S1010412

PATIENT
  Age: 75 Year
  Sex: Female
  Weight: 87.09 kg

DRUGS (1)
  1. NIFEDIPINE [Suspect]
     Indication: BLOOD PRESSURE INCREASED
     Route: 048
     Dates: start: 20110201, end: 20110407

REACTIONS (2)
  - FEELING HOT [None]
  - GROIN PAIN [None]
